FAERS Safety Report 8141440-7 (Version None)
Quarter: 2012Q1

REPORT INFORMATION
  Report Type: 
  Country: None (occurrence: None)
  Receive Date: 20120216
  Receipt Date: 20120202
  Transmission Date: 20120608
  Serious: Yes (Other)
  Sender: FDA-Public Use
  Company Number: AU-ROCHE-1023131

PATIENT
  Sex: Female

DRUGS (6)
  1. THYROXIN [Concomitant]
  2. LIPITOR [Concomitant]
  3. ATACAND [Concomitant]
  4. CELECOXIB [Concomitant]
  5. ACTEMRA [Suspect]
     Indication: RHEUMATOID ARTHRITIS
     Route: 042
     Dates: start: 20100428
  6. PREDNISOLONE [Concomitant]

REACTIONS (2)
  - TOE AMPUTATION [None]
  - ANGIOPATHY [None]
